FAERS Safety Report 8015800-9 (Version None)
Quarter: 2011Q4

REPORT INFORMATION
  Report Type: 
  Country: None (occurrence: None)
  Receive Date: 20111230
  Receipt Date: 20111223
  Transmission Date: 20120403
  Serious: No
  Sender: FDA-Public Use
  Company Number: US-BAYER-2011-124145

PATIENT
  Age: 55 Year
  Sex: Female

DRUGS (7)
  1. MIDODRINE HYDROCHLORIDE [Concomitant]
     Dosage: 2.5 MG, UNK
  2. SYMBICORT [Concomitant]
  3. BETASERON [Suspect]
     Dosage: 0.3 MG, QOD
     Route: 058
  4. ESOMEPRAZOLE SODIUM [Concomitant]
     Dosage: 20 MG, UNK
  5. ALBUTEROL [Concomitant]
     Dosage: 0.083 UNK, UNK
  6. COMBIVENT [Concomitant]
  7. SIMVASTATIN [Concomitant]
     Dosage: 20 MG, UNK
     Route: 048

REACTIONS (5)
  - NAUSEA [None]
  - VOMITING [None]
  - FALL [None]
  - MYALGIA [None]
  - PAIN [None]
